FAERS Safety Report 22614867 (Version 1)
Quarter: 2023Q2

REPORT INFORMATION
  Report Type: Spontaneous
  Country: US (occurrence: US)
  Receive Date: 20230619
  Receipt Date: 20230619
  Transmission Date: 20230722
  Serious: No
  Sender: FDA-Public Use
  Company Number: US-TEVA-2023-US-2894004

PATIENT
  Age: 40 Year
  Sex: Female

DRUGS (1)
  1. ETONOGESTREL/ETHINYL ESTRADIOL [Suspect]
     Active Substance: ETHINYL ESTRADIOL\ETONOGESTREL
     Indication: Product used for unknown indication
     Dosage: 0.120/0.015 MG-MG
     Route: 067

REACTIONS (2)
  - Vaginal haemorrhage [Unknown]
  - Product quality issue [Unknown]
